FAERS Safety Report 12163174 (Version 1)
Quarter: 2016Q1

REPORT INFORMATION
  Report Type: Spontaneous
  Country: US (occurrence: US)
  Receive Date: 20160309
  Receipt Date: 20160309
  Transmission Date: 20160526
  Serious: No
  Sender: FDA-Public Use
  Company Number: US-ROCHE-1536230

PATIENT
  Sex: Male

DRUGS (1)
  1. XOLAIR [Suspect]
     Active Substance: OMALIZUMAB
     Indication: IDIOPATHIC URTICARIA
     Route: 058
     Dates: end: 20140807

REACTIONS (4)
  - Arthralgia [Recovered/Resolved]
  - Myalgia [Recovered/Resolved]
  - Joint stiffness [Unknown]
  - Arthralgia [Unknown]
